FAERS Safety Report 5125624-8 (Version None)
Quarter: 2006Q4

REPORT INFORMATION
  Report Type: 
  Country: None (occurrence: None)
  Receive Date: 20061006
  Receipt Date: 20060922
  Transmission Date: 20070319
  Serious: Yes (Death, Hospitalization)
  Sender: FDA-Public Use
  Company Number: REM_00254_2006

PATIENT
  Age: 13 Year
  Sex: Male
  Weight: 62.7 kg

DRUGS (7)
  1. REMODULIN [Suspect]
     Indication: PULMONARY HYPERTENSION
     Dosage: 58 NG/KG/MIN CONTINUOUS IV
     Route: 042
     Dates: start: 20041209, end: 20051027
  2. LASIX [Concomitant]
  3. SILDENAFIL [Concomitant]
  4. COUMADIN [Concomitant]
  5. ADVAIR DISKUS 100/50 [Concomitant]
  6. OXYGEN [Concomitant]
  7. FLONASE [Concomitant]

REACTIONS (10)
  - BACTERAEMIA [None]
  - CARDIO-RESPIRATORY ARREST [None]
  - CHILLS [None]
  - DYSPNOEA [None]
  - ENTEROBACTER INFECTION [None]
  - FATIGUE [None]
  - OXYGEN SATURATION DECREASED [None]
  - PYREXIA [None]
  - STAPHYLOCOCCAL INFECTION [None]
  - THERAPY NON-RESPONDER [None]
